FAERS Safety Report 6415578-6 (Version None)
Quarter: 2009Q4

REPORT INFORMATION
  Report Type: 
  Country: None (occurrence: None)
  Receive Date: 20091027
  Receipt Date: 20091019
  Transmission Date: 20100525
  Serious: Yes (Other)
  Sender: FDA-Public Use
  Company Number: IT-BRISTOL-MYERS SQUIBB COMPANY-14828727

PATIENT
  Age: 67 Year
  Sex: Male

DRUGS (6)
  1. MITOTANE [Suspect]
     Indication: ADRENOCORTICAL CARCINOMA
     Dosage: REDUCED TO 1.5GM
     Dates: start: 20090401
  2. CORTONE ACETATE [Suspect]
     Dosage: 1.25 DF= (1/2+1/2+1/4)
  3. NITRODERM [Concomitant]
  4. CORDARONE [Concomitant]
  5. COUMADIN [Concomitant]
  6. DILATREND [Concomitant]

REACTIONS (6)
  - ABDOMINAL PAIN [None]
  - ALANINE AMINOTRANSFERASE INCREASED [None]
  - FATIGUE [None]
  - GAMMA-GLUTAMYLTRANSFERASE INCREASED [None]
  - MALAISE [None]
  - VOMITING [None]
